FAERS Safety Report 25326635 (Version 1)
Quarter: 2025Q2

REPORT INFORMATION
  Report Type: Spontaneous
  Country: US (occurrence: US)
  Receive Date: 20250516
  Receipt Date: 20250516
  Transmission Date: 20250716
  Serious: No
  Sender: SANOFI AVENTIS
  Company Number: US-SA-2025SA136887

PATIENT
  Age: 56 Year
  Sex: Female

DRUGS (19)
  1. DUPIXENT [Suspect]
     Active Substance: DUPILUMAB
     Indication: Asthma
     Dosage: 300 MG, QOW
     Route: 058
     Dates: start: 20250304
  2. ALBUTEROL SULFATE [Concomitant]
     Active Substance: ALBUTEROL SULFATE
  3. AMLODIPINE [Concomitant]
     Active Substance: AMLODIPINE BESYLATE
  4. AZITHROMYCIN [Concomitant]
     Active Substance: AZITHROMYCIN
  5. BUSPIRONE [Concomitant]
     Active Substance: BUSPIRONE HYDROCHLORIDE
  6. CLONAZEPAM [Concomitant]
     Active Substance: CLONAZEPAM
  7. DIAZEPAM [Concomitant]
     Active Substance: DIAZEPAM
  8. DULOXETINE [Concomitant]
     Active Substance: DULOXETINE
  9. FLUCONAZOLE [Concomitant]
     Active Substance: FLUCONAZOLE
  10. IRBESARTAN [Concomitant]
     Active Substance: IRBESARTAN
  11. HYDROCHLOROTHIAZIDE\LISINOPRIL [Concomitant]
     Active Substance: HYDROCHLOROTHIAZIDE\LISINOPRIL
  12. MELOXICAM [Concomitant]
     Active Substance: MELOXICAM
  13. METHOCARBAMOL [Concomitant]
     Active Substance: METHOCARBAMOL
  14. MONTELUKAST [Concomitant]
     Active Substance: MONTELUKAST
  15. NUCALA [Concomitant]
     Active Substance: MEPOLIZUMAB
  16. PREDNISONE [Concomitant]
     Active Substance: PREDNISONE
  17. SUMATRIPTAN [Concomitant]
     Active Substance: SUMATRIPTAN
  18. TIZANIDINE [Concomitant]
     Active Substance: TIZANIDINE
  19. CLONIDINE [Concomitant]
     Active Substance: CLONIDINE

REACTIONS (1)
  - Asthma [Unknown]

NARRATIVE: CASE EVENT DATE: 20250401
